FAERS Safety Report 9661464 (Version 2)
Quarter: 2013Q4

REPORT INFORMATION
  Report Type: Spontaneous
  Country: US (occurrence: US)
  Receive Date: 20131031
  Receipt Date: 20131031
  Transmission Date: 20140711
  Serious: No
  Sender: FDA-Public Use
  Company Number: US-PURDUE-USA-2010-0055431

PATIENT
  Age: 54 Year
  Sex: Male

DRUGS (1)
  1. OXYCONTIN (NDA 22-272) [Suspect]
     Indication: PRODUCT USED FOR UNKNOWN INDICATION

REACTIONS (5)
  - Fall [Unknown]
  - Medication residue present [Unknown]
  - Micturition urgency [Unknown]
  - Drug ineffective [Unknown]
  - Gastrointestinal disorder [Unknown]
